FAERS Safety Report 4335285-3 (Version None)
Quarter: 2004Q2

REPORT INFORMATION
  Report Type: 
  Country: None (occurrence: None)
  Receive Date: 20040408
  Receipt Date: 20040408
  Transmission Date: 20050107
  Serious: No
  Sender: FDA-Public Use
  Company Number: None

PATIENT

DRUGS (1)
  1. SUDODRIN 30 MG MEDIQUE [Suspect]

REACTIONS (1)
  - MEDICATION ERROR [None]
